FAERS Safety Report 7267475-4 (Version None)
Quarter: 2011Q1

REPORT INFORMATION
  Report Type: 
  Country: None (occurrence: None)
  Receive Date: 20110121
  Receipt Date: 20110113
  Transmission Date: 20110831
  Serious: Yes (Other)
  Sender: FDA-Public Use
  Company Number: WAES 1101USA01323

PATIENT
  Age: 56 Year
  Sex: Male
  Weight: 108.8633 kg

DRUGS (5)
  1. FLOVENT [Concomitant]
  2. ASPIRIN [Concomitant]
  3. LIPITOR [Suspect]
     Indication: BLOOD CHOLESTEROL INCREASED
     Dosage: 80 MG/DAILY/PO
     Route: 048
     Dates: start: 19960101
  4. ATENOLOL [Concomitant]
  5. ZETIA [Suspect]
     Indication: ARTERIAL OCCLUSIVE DISEASE
     Dosage: PO
     Route: 048
     Dates: start: 19960101

REACTIONS (4)
  - INTERVERTEBRAL DISC PROTRUSION [None]
  - BLOOD CHOLESTEROL INCREASED [None]
  - LACERATION [None]
  - LIMB INJURY [None]
